FAERS Safety Report 6442090-0 (Version None)
Quarter: 2009Q4

REPORT INFORMATION
  Report Type: 
  Country: None (occurrence: None)
  Receive Date: 20091116
  Receipt Date: 20091102
  Transmission Date: 20100525
  Serious: Yes (Hospitalization, Other)
  Sender: FDA-Public Use
  Company Number: PHHY2009GB45531

PATIENT
  Sex: Male

DRUGS (4)
  1. CLOZARIL [Suspect]
     Indication: SCHIZOPHRENIA
     Dosage: UNK
     Dates: start: 19951117, end: 20091019
  2. NEUPOGEN [Concomitant]
  3. HALOPERIDOL [Concomitant]
  4. VALPROATE SODIUM [Concomitant]
     Dosage: UNK
     Dates: end: 20091102

REACTIONS (12)
  - BLOOD CREATINE PHOSPHOKINASE INCREASED [None]
  - CATATONIA [None]
  - DISORIENTATION [None]
  - FOOD AVERSION [None]
  - INFECTION [None]
  - LABILE BLOOD PRESSURE [None]
  - MALAISE [None]
  - MENTAL DISORDER [None]
  - NEUTROPENIA [None]
  - NEUTROPHIL COUNT DECREASED [None]
  - OEDEMA PERIPHERAL [None]
  - WHITE BLOOD CELL COUNT DECREASED [None]
